FAERS Safety Report 8014259-5 (Version None)
Quarter: 2011Q4

REPORT INFORMATION
  Report Type: 
  Country: None (occurrence: None)
  Receive Date: 20111229
  Receipt Date: 20111222
  Transmission Date: 20120403
  Serious: Yes (Death, Hospitalization)
  Sender: FDA-Public Use
  Company Number: JP-GLAXOSMITHKLINE-B0761897A

PATIENT
  Sex: Female
  Weight: 75 kg

DRUGS (13)
  1. SLOWHEIM [Concomitant]
     Indication: DEPRESSION
     Route: 048
     Dates: start: 20000101, end: 20110225
  2. LANSOPRAZOLE [Concomitant]
     Indication: ABDOMINAL PAIN UPPER
     Route: 048
     Dates: start: 20100813, end: 20110225
  3. CHINESE MEDICINE [Concomitant]
     Indication: HYPOAESTHESIA
     Route: 048
     Dates: start: 20100507, end: 20110225
  4. FLUNITRAZEPAM [Concomitant]
     Indication: DEPRESSION
     Route: 048
     Dates: start: 20000101, end: 20110225
  5. FENTANYL CITRATE [Concomitant]
     Indication: ABDOMINAL PAIN
     Route: 062
     Dates: start: 20110216, end: 20110305
  6. VITAMEDIN [Concomitant]
     Indication: HYPOAESTHESIA
     Route: 048
     Dates: start: 20100709, end: 20110225
  7. UNDEPRE [Concomitant]
     Indication: DEPRESSION
     Route: 048
     Dates: start: 20000101, end: 20110225
  8. ALDACTONE [Concomitant]
     Indication: CARDIAC FAILURE
     Route: 048
     Dates: start: 20100702, end: 20110221
  9. TYKERB [Suspect]
     Indication: BREAST CANCER
     Dosage: 1250MG PER DAY
     Route: 048
     Dates: start: 20110121, end: 20110204
  10. FUROSEMIDE [Concomitant]
     Indication: CARDIAC FAILURE
     Route: 048
     Dates: start: 20091225, end: 20110221
  11. XELODA [Suspect]
     Dosage: 1800MG PER DAY
     Route: 048
     Dates: start: 20110121, end: 20110204
  12. LOXONIN [Concomitant]
     Indication: ABDOMINAL PAIN
     Route: 048
     Dates: start: 20110222, end: 20110225
  13. METHYCOBAL [Concomitant]
     Indication: HYPOAESTHESIA
     Route: 048
     Dates: start: 20100507, end: 20110225

REACTIONS (3)
  - NAUSEA [None]
  - HEPATIC CIRRHOSIS [None]
  - VOMITING [None]
